FAERS Safety Report 4443475-4 (Version None)
Quarter: 2004Q3

REPORT INFORMATION
  Report Type: 
  Country: None (occurrence: None)
  Receive Date: 20040907
  Receipt Date: 20040823
  Transmission Date: 20050211
  Serious: No
  Sender: FDA-Public Use
  Company Number: 2004GB02045

PATIENT
  Sex: Male
  Weight: 85 kg

DRUGS (9)
  1. CRESTOR [Suspect]
     Indication: LIPIDS INCREASED
     Dosage: 10 MG DAILY PO
     Route: 048
     Dates: start: 20040604, end: 20040815
  2. ALLOPURINOL [Concomitant]
  3. BISOPROLOL FUMARATE [Concomitant]
  4. NICORANDIL [Concomitant]
  5. MONOMAX [Concomitant]
  6. CAPTOPRIL [Concomitant]
  7. FUROSEMIDE [Concomitant]
  8. COGNEX [Concomitant]
  9. COLCHICINE [Concomitant]

REACTIONS (1)
  - ANAPHYLACTIC REACTION [None]
